FAERS Safety Report 17578519 (Version 2)
Quarter: 2020Q2

REPORT INFORMATION
  Report Type: Report from Study
  Country: CO (occurrence: CO)
  Receive Date: 20200324
  Receipt Date: 20200617
  Transmission Date: 20200713
  Serious: Yes (Other)
  Sender: FDA-Public Use
  Company Number: CO-BAYER-2019-175498

PATIENT
  Age: 78 Year
  Sex: Male

DRUGS (3)
  1. NEXAVAR [Suspect]
     Active Substance: SORAFENIB
     Indication: HEPATOCELLULAR CARCINOMA
     Dosage: 400 MG, BID
     Route: 048
     Dates: start: 20190706, end: 20191121
  2. NEXAVAR [Suspect]
     Active Substance: SORAFENIB
     Indication: HEPATOCELLULAR CARCINOMA
     Dosage: 400 MG, BID (400 MG EVERY 12 HOURS)
  3. METFORMIN [Concomitant]
     Active Substance: METFORMIN HYDROCHLORIDE
     Indication: DIABETES MELLITUS
     Dosage: UNK

REACTIONS (15)
  - Epididymitis [Not Recovered/Not Resolved]
  - Hydrocele [Not Recovered/Not Resolved]
  - Orchitis [Not Recovered/Not Resolved]
  - Spermatocele [Not Recovered/Not Resolved]
  - Abnormal faeces [Unknown]
  - Diarrhoea [Not Recovered/Not Resolved]
  - Orchitis noninfective [Not Recovered/Not Resolved]
  - Acne [Unknown]
  - Weight decreased [Not Recovered/Not Resolved]
  - Tumour excision [Recovered/Resolved]
  - Testicular atrophy [Not Recovered/Not Resolved]
  - Benign neoplasm of testis [Not Recovered/Not Resolved]
  - Testicular mass [Not Recovered/Not Resolved]
  - Diarrhoea [Not Recovered/Not Resolved]
  - Splenomegaly [Not Recovered/Not Resolved]

NARRATIVE: CASE EVENT DATE: 20190706
